FAERS Safety Report 10885456 (Version 1)
Quarter: 2015Q1

REPORT INFORMATION
  Report Type: Spontaneous
  Country: US (occurrence: US)
  Receive Date: 20150304
  Receipt Date: 20150304
  Transmission Date: 20150721
  Serious: Yes (Other)
  Sender: FDA-Public Use
  Company Number: US-PFIZER INC-2015075453

PATIENT
  Age: 37 Year
  Sex: Female
  Weight: 49 kg

DRUGS (1)
  1. XANAX [Suspect]
     Active Substance: ALPRAZOLAM
     Indication: ANXIETY
     Dosage: 1 MG, 3X/DAY AS NEEDED
     Route: 048
     Dates: start: 2006

REACTIONS (13)
  - Malignant melanoma [Unknown]
  - Renal disorder [Unknown]
  - Hereditary leiomyomatosis renal cell carcinoma [Unknown]
  - Mental disorder [Unknown]
  - Uterine leiomyoma [Unknown]
  - Immunodeficiency common variable [Not Recovered/Not Resolved]
  - Uterine disorder [Unknown]
  - Impaired work ability [Unknown]
  - Pneumonia [Recovered/Resolved]
  - Crohn^s disease [Unknown]
  - Staphylococcal infection [Recovered/Resolved]
  - Pulmonary embolism [Not Recovered/Not Resolved]
  - Deep vein thrombosis [Recovered/Resolved]

NARRATIVE: CASE EVENT DATE: 2007
